FAERS Safety Report 14007167 (Version 1)
Quarter: 2017Q3

REPORT INFORMATION
  Report Type: Spontaneous
  Country: US (occurrence: US)
  Receive Date: 20170924
  Receipt Date: 20170924
  Transmission Date: 20171128
  Serious: Yes (Disabling)
  Sender: FDA-Public Use
  Company Number: None

PATIENT
  Sex: Female
  Weight: 51.75 kg

DRUGS (17)
  1. PANTOPRAZOLE [Concomitant]
     Active Substance: PANTOPRAZOLE
  2. L ACYTEL CARNITINE [Concomitant]
  3. HYDROXYZINE [Concomitant]
     Active Substance: HYDROXYZINE HYDROCHLORIDE
  4. EPIPEN [Concomitant]
     Active Substance: EPINEPHRINE
  5. VITAMIN D WITH K2 [Concomitant]
  6. MESTINON [Concomitant]
     Active Substance: PYRIDOSTIGMINE BROMIDE
  7. LOW DOSE NALTREXONE [Concomitant]
     Active Substance: NALTREXONE
  8. ALBUTEROL. [Concomitant]
     Active Substance: ALBUTEROL
  9. VITAMIN C [Concomitant]
     Active Substance: ASCORBIC ACID
  10. MULTIVITAMIN [Concomitant]
     Active Substance: VITAMINS
  11. DIAZAPAM [Concomitant]
     Active Substance: DIAZEPAM
  12. TRAMADOL. [Concomitant]
     Active Substance: TRAMADOL
  13. SYMBICORT [Concomitant]
     Active Substance: BUDESONIDE\FORMOTEROL FUMARATE DIHYDRATE
  14. XOPENEX [Concomitant]
     Active Substance: LEVALBUTEROL HYDROCHLORIDE
  15. BREO ELLIPTA [Suspect]
     Active Substance: FLUTICASONE FUROATE\VILANTEROL TRIFENATATE
     Indication: NEUROMYOPATHY
     Dosage: ?          OTHER STRENGTH:MCG;QUANTITY:2 PUFF(S);?
     Route: 055
     Dates: start: 20160731, end: 20160813
  16. COQ10 [Concomitant]
     Active Substance: UBIDECARENONE
  17. GABAPENTIN. [Concomitant]
     Active Substance: GABAPENTIN

REACTIONS (5)
  - Bronchitis [None]
  - Sinusitis [None]
  - Myasthenia gravis [None]
  - Mitochondrial myopathy [None]
  - Paranasal sinus discomfort [None]

NARRATIVE: CASE EVENT DATE: 20160731
